FAERS Safety Report 22370268 (Version 13)
Quarter: 2024Q1

REPORT INFORMATION
  Report Type: Report from Study
  Country: CA (occurrence: CA)
  Receive Date: 20230526
  Receipt Date: 20240307
  Transmission Date: 20240410
  Serious: Yes (Other)
  Sender: FDA-Public Use
  Company Number: CA-JNJFOC-20230558048

PATIENT
  Age: 56 Year
  Sex: Female
  Weight: 88 kg

DRUGS (6)
  1. REMICADE [Suspect]
     Active Substance: INFLIXIMAB
     Indication: Ankylosing spondylitis
     Dosage: THERAPY START DATE: 26-MAY-2016 ?EXPIRY: 01-AUG-2025
     Route: 041
     Dates: start: 20140415
  2. REMICADE [Suspect]
     Active Substance: INFLIXIMAB
     Dosage: STOP ON 11-APR-2023 AND RE-STARTED ON 19-SEP-2023
     Route: 042
  3. REMICADE [Suspect]
     Active Substance: INFLIXIMAB
     Route: 041
     Dates: start: 20160526
  4. HYDROMORPHONE [Concomitant]
     Active Substance: HYDROMORPHONE
     Indication: Product used for unknown indication
     Route: 065
  5. DILAUDID [Concomitant]
     Active Substance: HYDROMORPHONE HYDROCHLORIDE
     Indication: Product used for unknown indication
     Route: 065
  6. GRAVOL [Concomitant]
     Active Substance: DIMENHYDRINATE
     Indication: Premedication
     Dosage: 50MG OF IV GRAVOL PRIOR TO INFUSION
     Route: 042

REACTIONS (37)
  - Pneumonia fungal [Unknown]
  - COVID-19 pneumonia [Unknown]
  - Sepsis [Unknown]
  - Pneumonia aspiration [Unknown]
  - Pancreatitis chronic [Unknown]
  - Hypothyroidism [Unknown]
  - Loss of consciousness [Unknown]
  - Fall [Unknown]
  - Abdominal distension [Unknown]
  - Pulmonary oedema [Unknown]
  - Abdominal pain [Unknown]
  - Nausea [Recovered/Resolved]
  - Infusion related reaction [Recovered/Resolved]
  - Diarrhoea [Not Recovered/Not Resolved]
  - COVID-19 [Unknown]
  - Respiratory syncytial virus infection [Unknown]
  - Pulmonary mass [Unknown]
  - Anal incontinence [Unknown]
  - Chronic obstructive pulmonary disease [Unknown]
  - Peripheral swelling [Unknown]
  - Hypoaesthesia [Not Recovered/Not Resolved]
  - Oesophagitis [Unknown]
  - Gastritis [Unknown]
  - Nerve injury [Unknown]
  - Face injury [Unknown]
  - Decreased appetite [Unknown]
  - Emphysema [Unknown]
  - Irritable bowel syndrome [Unknown]
  - Balance disorder [Unknown]
  - Head injury [Unknown]
  - Nasal injury [Unknown]
  - Amnesia [Unknown]
  - Contusion [Unknown]
  - Weight increased [Unknown]
  - Hypotension [Unknown]
  - Drug ineffective [Unknown]
  - Influenza [Unknown]

NARRATIVE: CASE EVENT DATE: 20220101
